FAERS Safety Report 6663511-4 (Version None)
Quarter: 2010Q2

REPORT INFORMATION
  Report Type: 
  Country: None (occurrence: None)
  Receive Date: 20100401
  Receipt Date: 20100325
  Transmission Date: 20101027
  Serious: Yes (Hospitalization)
  Sender: FDA-Public Use
  Company Number: SE-BRISTOL-MYERS SQUIBB COMPANY-15015472

PATIENT
  Age: 65 Year
  Sex: Female

DRUGS (6)
  1. ABILIFY [Suspect]
     Indication: DEPRESSION
     Dates: start: 20100105, end: 20100209
  2. HALDOL [Concomitant]
     Dosage: HALDOL  1 MG TABLET
  3. TROMBYL [Concomitant]
     Dosage: TROMBYL  75 MG TABLETS.
  4. SIMVASTATIN [Concomitant]
  5. MIRTAZAPINE [Concomitant]
  6. GLIBENKLAMID [Concomitant]

REACTIONS (6)
  - DIZZINESS [None]
  - FALL [None]
  - HEAD INJURY [None]
  - NAUSEA [None]
  - SYNCOPE [None]
  - VOMITING [None]
